FAERS Safety Report 5779769-X (Version None)
Quarter: 2008Q2

REPORT INFORMATION
  Report Type: 
  Country: None (occurrence: None)
  Receive Date: 20080617
  Receipt Date: 20080602
  Transmission Date: 20081010
  Serious: Yes (Other)
  Sender: FDA-Public Use
  Company Number: S08-GER-02057-01

PATIENT
  Sex: Male

DRUGS (2)
  1. CITALOPRAM HYDROBROMIDE [Suspect]
     Dates: start: 20070101
  2. PLAVIX [Concomitant]

REACTIONS (2)
  - DIVERTICULUM [None]
  - POST PROCEDURAL HAEMORRHAGE [None]
